FAERS Safety Report 7306701-X (Version None)
Quarter: 2011Q1

REPORT INFORMATION
  Report Type: 
  Country: None (occurrence: None)
  Receive Date: 20110222
  Receipt Date: 20110215
  Transmission Date: 20110831
  Serious: Yes (Hospitalization)
  Sender: FDA-Public Use
  Company Number: US-US-EMD SERONO, INC.-7001184

PATIENT
  Sex: Male

DRUGS (3)
  1. SAIZEN [Suspect]
     Indication: GROWTH HORMONE DEFICIENCY
     Dates: start: 20100101
  2. SAIZEN [Suspect]
     Dates: start: 20100217, end: 20100219
  3. SAIZEN [Suspect]
     Dates: start: 20100201

REACTIONS (2)
  - RESPIRATORY DISORDER [None]
  - EAR INFECTION [None]
